FAERS Safety Report 18025607 (Version 1)
Quarter: 2020Q3

REPORT INFORMATION
  Report Type: Spontaneous
  Country: US (occurrence: US)
  Receive Date: 20200715
  Receipt Date: 20200715
  Transmission Date: 20201103
  Serious: Yes (Other)
  Sender: FDA-Public Use
  Company Number: US-AMGEN INC.-USASP2020112019

PATIENT
  Sex: Female

DRUGS (1)
  1. AIMOVIG [Suspect]
     Active Substance: ERENUMAB-AOOE
     Indication: MIGRAINE
     Dosage: UNK
     Route: 065

REACTIONS (4)
  - Hypoaesthesia [Unknown]
  - Fungal infection [Unknown]
  - Limb injury [Unknown]
  - Blindness [Not Recovered/Not Resolved]
